FAERS Safety Report 21770440 (Version 3)
Quarter: 2023Q1

REPORT INFORMATION
  Report Type: Report from Study
  Country: FR (occurrence: FR)
  Receive Date: 20221223
  Receipt Date: 20230331
  Transmission Date: 20230418
  Serious: Yes (Death, Hospitalization)
  Sender: FDA-Public Use
  Company Number: FR-JNJFOC-20221212801

PATIENT
  Age: 75 Year
  Sex: Male
  Weight: 71.7 kg

DRUGS (17)
  1. TECLISTAMAB [Suspect]
     Active Substance: TECLISTAMAB
     Indication: Plasma cell myeloma
     Dosage: FIRST PRIMING DOSE 4380 UG
     Route: 058
     Dates: start: 20220906, end: 20221128
  2. TECLISTAMAB [Suspect]
     Active Substance: TECLISTAMAB
     Dosage: SECOND PRIMING DOSE 21900 UG
     Route: 058
     Dates: start: 20220909
  3. TECLISTAMAB [Suspect]
     Active Substance: TECLISTAMAB
     Dosage: C1D1, 109000 UG?MED KIT NOS.: 705819, 705820
     Route: 058
     Dates: start: 20220912
  4. TECLISTAMAB [Suspect]
     Active Substance: TECLISTAMAB
     Dosage: DOSE ON 18/NOV/2022 AT 219000 UG ?MED KIT NOS.: 705819, 705820
     Route: 058
  5. TECLISTAMAB [Suspect]
     Active Substance: TECLISTAMAB
     Dosage: MEDICATION KIT NUMBER 705819, 705820
     Route: 058
     Dates: start: 20220906, end: 20221128
  6. VALACYCLOVIR HYDROCHLORIDE [Concomitant]
     Active Substance: VALACYCLOVIR HYDROCHLORIDE
     Indication: Antiviral prophylaxis
     Route: 048
     Dates: start: 201501
  7. BACTRIM [Concomitant]
     Active Substance: SULFAMETHOXAZOLE\TRIMETHOPRIM
     Indication: Infection prophylaxis
     Dosage: 1 TABLET
     Route: 048
     Dates: start: 201807
  8. ESOMEPRAZOLE [Concomitant]
     Active Substance: ESOMEPRAZOLE
     Indication: Gastrointestinal disorder therapy
     Route: 048
     Dates: start: 201807
  9. LEUCOVORIN CALCIUM [Concomitant]
     Active Substance: LEUCOVORIN CALCIUM
     Indication: Prophylaxis
     Route: 048
     Dates: start: 201807
  10. ACETAMINOPHEN [Concomitant]
     Active Substance: ACETAMINOPHEN
     Route: 042
     Dates: start: 20220908, end: 20220913
  11. CEFTRIAXONE SODIUM [Concomitant]
     Active Substance: CEFTRIAXONE SODIUM
     Indication: Cytokine release syndrome
     Route: 042
     Dates: start: 20220912, end: 20220915
  12. TOCILIZUMAB [Concomitant]
     Active Substance: TOCILIZUMAB
     Indication: Cytokine release syndrome
     Route: 042
     Dates: start: 20220913, end: 20220913
  13. BALSOLENE [Concomitant]
     Indication: Bronchitis
     Dosage: 1
     Route: 055
     Dates: start: 20220929
  14. ALBUTEROL SULFATE [Concomitant]
     Active Substance: ALBUTEROL SULFATE
     Indication: Bronchitis
     Dosage: 1
     Route: 055
     Dates: start: 20220929
  15. DOLIPRANE [Concomitant]
     Active Substance: ACETAMINOPHEN
     Indication: Bronchitis
     Route: 048
     Dates: start: 20220929
  16. AMOXICILLIN [Concomitant]
     Active Substance: AMOXICILLIN
     Indication: Bronchitis
     Route: 048
     Dates: start: 20221003, end: 20221011
  17. RACECADOTRIL [Concomitant]
     Active Substance: RACECADOTRIL
     Indication: Diarrhoea
     Route: 048
     Dates: start: 20221017

REACTIONS (1)
  - Pneumonia viral [Fatal]

NARRATIVE: CASE EVENT DATE: 20221129
